FAERS Safety Report 6357510-X (Version None)
Quarter: 2009Q3

REPORT INFORMATION
  Report Type: 
  Country: None (occurrence: None)
  Receive Date: 20090916
  Receipt Date: 20090904
  Transmission Date: 20100115
  Serious: Yes (Other)
  Sender: FDA-Public Use
  Company Number: SE-JNJFOC-20090902982

PATIENT
  Age: 23 Year
  Sex: Male

DRUGS (6)
  1. REMICADE [Suspect]
     Route: 042
  2. REMICADE [Suspect]
     Indication: CROHN'S DISEASE
     Route: 042
  3. PREDNISOLONE [Concomitant]
  4. PENTASA [Concomitant]
  5. IMUREL [Concomitant]
  6. FLAGYL [Concomitant]

REACTIONS (4)
  - CROHN'S DISEASE [None]
  - DRUG INEFFECTIVE [None]
  - FISTULA [None]
  - SURGERY [None]
